FAERS Safety Report 5264623-2 (Version None)
Quarter: 2007Q1

REPORT INFORMATION
  Report Type: 
  Country: None (occurrence: None)
  Receive Date: 20070314
  Receipt Date: 20070305
  Transmission Date: 20070707
  Serious: Yes (Hospitalization)
  Sender: FDA-Public Use
  Company Number: PHBS2007JP03440

PATIENT
  Age: 24 Year
  Sex: Male

DRUGS (1)
  1. VOLTAREN [Suspect]
     Indication: ABDOMINAL PAIN UPPER
     Route: 054

REACTIONS (11)
  - ABDOMINAL PAIN [None]
  - ABDOMINAL TENDERNESS [None]
  - BIOPSY COLON ABNORMAL [None]
  - COMPUTERISED TOMOGRAM ABNORMAL [None]
  - ENDOSCOPY UPPER GASTROINTESTINAL TRACT ABNORMAL [None]
  - ENTERITIS [None]
  - EROSIVE DUODENITIS [None]
  - INFLAMMATION [None]
  - LOCALISED OEDEMA [None]
  - SMALL INTESTINE ULCER [None]
  - X-RAY WITH CONTRAST UPPER GASTROINTESTINAL TRACT [None]
